FAERS Safety Report 10723189 (Version 3)
Quarter: 2015Q2

REPORT INFORMATION
  Report Type: Spontaneous
  Country: US (occurrence: US)
  Receive Date: 20150120
  Receipt Date: 20150520
  Transmission Date: 20150821
  Serious: No
  Sender: FDA-Public Use
  Company Number: US-PFIZER INC-2015020563

PATIENT
  Age: 73 Year
  Sex: Female
  Weight: 91 kg

DRUGS (1)
  1. AROMASIN [Suspect]
     Active Substance: EXEMESTANE
     Indication: BREAST CANCER FEMALE
     Dosage: UNK

REACTIONS (3)
  - Fall [Unknown]
  - Muscle spasms [Unknown]
  - Intentional product misuse [Unknown]
